FAERS Safety Report 8558950-0 (Version None)
Quarter: 2012Q3

REPORT INFORMATION
  Report Type: 
  Country: None (occurrence: None)
  Receive Date: 20120802
  Receipt Date: 20120727
  Transmission Date: 20120928
  Serious: Yes (Hospitalization)
  Sender: FDA-Public Use
  Company Number: US-009507513-1207USA011621

PATIENT

DRUGS (3)
  1. GEODON [Interacting]
  2. SAPHRIS [Suspect]
     Dosage: UNK
     Route: 060
     Dates: start: 20120713
  3. XANAX [Interacting]

REACTIONS (3)
  - LOSS OF CONSCIOUSNESS [None]
  - ACCIDENTAL OVERDOSE [None]
  - DRUG INTERACTION [None]
